FAERS Safety Report 5759049-9 (Version None)
Quarter: 2008Q2

REPORT INFORMATION
  Report Type: 
  Country: None (occurrence: None)
  Receive Date: 20080604
  Receipt Date: 20080603
  Transmission Date: 20081010
  Serious: Yes (Hospitalization)
  Sender: FDA-Public Use
  Company Number: FR-WYE-G01626708

PATIENT
  Age: 5 Month
  Sex: Male

DRUGS (1)
  1. ADVIL [Suspect]
     Indication: PYREXIA
     Dosage: UNKNOWN
     Route: 048
     Dates: start: 20070101

REACTIONS (1)
  - HYDROCEPHALUS [None]
